FAERS Safety Report 7386316-8 (Version None)
Quarter: 2011Q1

REPORT INFORMATION
  Report Type: 
  Country: None (occurrence: None)
  Receive Date: 20110331
  Receipt Date: 20110317
  Transmission Date: 20110831
  Serious: Yes (Other)
  Sender: FDA-Public Use
  Company Number: PHHY2011CA22460

PATIENT
  Sex: Female

DRUGS (5)
  1. CLOZARIL [Suspect]
     Indication: SCHIZOAFFECTIVE DISORDER
     Dosage: 175 MG
     Route: 048
     Dates: start: 20040225, end: 20110130
  2. EFFEXOR [Concomitant]
     Dosage: 150 MG, QHS
     Route: 048
     Dates: start: 20050101
  3. AXID [Concomitant]
     Dosage: 300 MG, BID
     Dates: start: 20050101
  4. DIVALPROEX SODIUM [Concomitant]
     Dosage: 750 MG, TID
     Route: 048
  5. COGENTIN [Concomitant]
     Dosage: 1 MG, PER OS
     Route: 048
     Dates: start: 20050101

REACTIONS (3)
  - ENURESIS [None]
  - FATIGUE [None]
  - NOCTURIA [None]
